FAERS Safety Report 4609588-9 (Version None)
Quarter: 2005Q1

REPORT INFORMATION
  Report Type: 
  Country: None (occurrence: None)
  Receive Date: 20050314
  Receipt Date: 20050314
  Transmission Date: 20050727
  Serious: Yes (Hospitalization)
  Sender: FDA-Public Use
  Company Number: None

PATIENT
  Sex: Male
  Weight: 10.8 kg

DRUGS (3)
  1. TOPIRAMATE [Suspect]
     Indication: LENNOX-GASTAUT SYNDROME
     Dosage: 75 MG PO BID
     Route: 048
     Dates: start: 20050101
  2. LAMICTAL [Concomitant]
  3. ZONEGRAN [Concomitant]

REACTIONS (5)
  - ANOREXIA [None]
  - CONDITION AGGRAVATED [None]
  - CONVULSION [None]
  - DEHYDRATION [None]
  - NAUSEA [None]
